FAERS Safety Report 20700586 (Version 1)
Quarter: 2022Q2

REPORT INFORMATION
  Report Type: Spontaneous
  Country: US (occurrence: US)
  Receive Date: 20220412
  Receipt Date: 20220412
  Transmission Date: 20220720
  Serious: No
  Sender: FDA-Public Use
  Company Number: US-BAYER-2022A051611

PATIENT
  Sex: Female

DRUGS (2)
  1. KYLEENA [Suspect]
     Active Substance: LEVONORGESTREL
     Indication: Abdominal pain lower
     Dosage: 17.5?G/DAY
     Route: 015
     Dates: start: 20220408
  2. KYLEENA [Suspect]
     Active Substance: LEVONORGESTREL
     Indication: Contraception

REACTIONS (1)
  - Procedural headache [None]

NARRATIVE: CASE EVENT DATE: 20220408
